FAERS Safety Report 12632645 (Version 2)
Quarter: 2016Q3

REPORT INFORMATION
  Report Type: Spontaneous
  Country: US (occurrence: US)
  Receive Date: 20160808
  Receipt Date: 20160808
  Transmission Date: 20161109
  Serious: No
  Sender: FDA-Public Use
  Company Number: US-BEH-2015056404

PATIENT
  Sex: Female
  Weight: 67 kg

DRUGS (24)
  1. BUPROPION XL [Concomitant]
     Active Substance: BUPROPION
  2. CURCUMIN [Concomitant]
     Active Substance: CURCUMIN
  3. QUINOLINES [Concomitant]
  4. EPIPEN [Concomitant]
     Active Substance: EPINEPHRINE
  5. SERTRALINE [Concomitant]
     Active Substance: SERTRALINE HYDROCHLORIDE
  6. LUTEIN [Concomitant]
     Active Substance: LUTEIN
  7. HYALURONIC ACID [Concomitant]
     Active Substance: HYALURONIC ACID
  8. VITAMIN B12-FOLIC ACID [Concomitant]
  9. COGNETEX [Concomitant]
  10. HIZENTRA [Suspect]
     Active Substance: HUMAN IMMUNOGLOBULIN G
     Route: 058
  11. OMEGA-7 [Concomitant]
  12. DIPHENHYDRAMINE. [Concomitant]
     Active Substance: DIPHENHYDRAMINE
  13. LYCOPENE [Concomitant]
     Active Substance: LYCOPENE
  14. HIZENTRA [Suspect]
     Active Substance: HUMAN IMMUNOGLOBULIN G
     Indication: IMMUNODEFICIENCY COMMON VARIABLE
     Route: 058
  15. SYNTHROID [Concomitant]
     Active Substance: LEVOTHYROXINE SODIUM
  16. VITAMIN K [Concomitant]
     Active Substance: PHYTONADIONE
  17. RAMIPRIL. [Concomitant]
     Active Substance: RAMIPRIL
  18. HIZENTRA [Suspect]
     Active Substance: HUMAN IMMUNOGLOBULIN G
     Route: 058
  19. OMEGA-3 ACIDS [Concomitant]
     Active Substance: OMEGA-3 FATTY ACIDS
  20. BIOSIL [Concomitant]
  21. PANTOPRAZOLE [Concomitant]
     Active Substance: PANTOPRAZOLE SODIUM
  22. VITAMIN D [Concomitant]
     Active Substance: CHOLECALCIFEROL
  23. METFORMIN [Concomitant]
     Active Substance: METFORMIN HYDROCHLORIDE
  24. COQ10 [Concomitant]
     Active Substance: UBIDECARENONE

REACTIONS (1)
  - Nasopharyngitis [Unknown]
